FAERS Safety Report 7420874-X (Version None)
Quarter: 2011Q2

REPORT INFORMATION
  Report Type: 
  Country: None (occurrence: None)
  Receive Date: 20110418
  Receipt Date: 20110412
  Transmission Date: 20111010
  Serious: Yes (Disabling, Other)
  Sender: FDA-Public Use
  Company Number: A0857217A

PATIENT
  Sex: Female

DRUGS (1)
  1. AVANDIA [Suspect]
     Indication: DIABETES MELLITUS
     Dosage: 8MG PER DAY
     Route: 048
     Dates: start: 20021001, end: 20040101

REACTIONS (10)
  - CARDIOMEGALY [None]
  - DEHYDRATION [None]
  - OSTEOMYELITIS [None]
  - ARTHRITIS INFECTIVE [None]
  - COLITIS ISCHAEMIC [None]
  - CARDIAC FAILURE CONGESTIVE [None]
  - PLEURAL EFFUSION [None]
  - DIASTOLIC DYSFUNCTION [None]
  - CARDIAC FAILURE [None]
  - ACUTE PRERENAL FAILURE [None]
